FAERS Safety Report 7297782-0 (Version None)
Quarter: 2011Q1

REPORT INFORMATION
  Report Type: 
  Country: None (occurrence: None)
  Receive Date: 20110217
  Receipt Date: 20110205
  Transmission Date: 20110831
  Serious: Yes (Death, Hospitalization, Other)
  Sender: FDA-Public Use
  Company Number: JP-PAR PHARMACEUTICAL, INC-2011SCPR002674

PATIENT
  Age: 81 Year
  Sex: Male

DRUGS (3)
  1. DOCETAXEL [Suspect]
     Indication: PROSTATE CANCER
     Dosage: ONCE A WEEK FOR TWO CONSECUTIVE WEEKS (DAYS 1 AND 8)
     Route: 065
  2. DEXAMETHASONE [Suspect]
     Indication: PROSTATE CANCER
     Dosage: 1 MG, QD
     Route: 048
  3. ESTRAMUSTINE [Suspect]
     Indication: PROSTATE CANCER
     Dosage: 560 MG/D DURING DAYS 1-3 AND DAYS 8-10
     Route: 048

REACTIONS (6)
  - ANAEMIA [None]
  - MULTI-ORGAN FAILURE [None]
  - NICOTINIC ACID DEFICIENCY [None]
  - CHOLELITHIASIS [None]
  - DEATH [None]
  - WEIGHT DECREASED [None]
